FAERS Safety Report 16702343 (Version 1)
Quarter: 2019Q3

REPORT INFORMATION
  Report Type: Spontaneous
  Country: CO (occurrence: CO)
  Receive Date: 20190814
  Receipt Date: 20190814
  Transmission Date: 20191004
  Serious: Yes (Hospitalization)
  Sender: FDA-Public Use
  Company Number: PHHY2019CO187378

PATIENT

DRUGS (2)
  1. EXELON PATCH [Suspect]
     Active Substance: RIVASTIGMINE
     Indication: PRODUCT USED FOR UNKNOWN INDICATION
     Dosage: 9.5 MG QD (PATCH 10 (CM2), 18 MG RIVASTIGMINE BASE)
     Route: 062
  2. EXELON PATCH [Suspect]
     Active Substance: RIVASTIGMINE
     Dosage: 13.3 MG QD(PATCH 15 (CM2), 27 MG RIVASTIGMINE BASE)
     Route: 062

REACTIONS (2)
  - Hyponatraemia [Unknown]
  - Hypokalaemia [Unknown]
